FAERS Safety Report 8924669 (Version 1)
Quarter: 2012Q4

REPORT INFORMATION
  Report Type: 
  Country: US (occurrence: US)
  Receive Date: 20121126
  Receipt Date: 20121126
  Transmission Date: 20130627
  Serious: No
  Sender: FDA-Public Use
  Company Number: US-BRISTOL-MYERS SQUIBB COMPANY-17054073

PATIENT
  Age: 68 Year
  Sex: Female

DRUGS (4)
  1. KOMBIGLYZE XR [Suspect]
     Indication: TYPE 2 DIABETES MELLITUS
     Dosage: 1DF:5/1000 mg
     Dates: start: 201112
  2. SYNTHROID [Concomitant]
  3. BENICAR [Concomitant]
  4. ALLOPURINOL [Concomitant]

REACTIONS (2)
  - Blood glucose increased [Unknown]
  - Medication residue [Unknown]
